FAERS Safety Report 9228977 (Version 1)
Quarter: 2013Q2

REPORT INFORMATION
  Report Type: Spontaneous
  Country: US (occurrence: US)
  Receive Date: 20130412
  Receipt Date: 20130412
  Transmission Date: 20140414
  Serious: No
  Sender: FDA-Public Use
  Company Number: US-PFIZER INC-2013111265

PATIENT
  Age: 51 Year
  Sex: Male
  Weight: 118 kg

DRUGS (2)
  1. VIAGRA [Suspect]
     Indication: ERECTILE DYSFUNCTION
     Dosage: 50 MG, AS NEEDED
     Route: 048
     Dates: start: 2003
  2. VIAGRA [Suspect]
     Dosage: 100 MG, AS NEEDED
     Route: 048

REACTIONS (1)
  - Drug ineffective [Unknown]
